FAERS Safety Report 4840801-9 (Version None)
Quarter: 2005Q4

REPORT INFORMATION
  Report Type: 
  Country: None (occurrence: None)
  Receive Date: 20051130
  Receipt Date: 20050104
  Transmission Date: 20060501
  Serious: No
  Sender: FDA-Public Use
  Company Number: US-BRISTOL-MYERS SQUIBB COMPANY-12812772

PATIENT
  Age: 50 Year
  Sex: Female
  Weight: 82 kg

DRUGS (3)
  1. AVALIDE [Suspect]
     Indication: HYPERTENSION
     Route: 048
     Dates: start: 20041115, end: 20041201
  2. CENTRUM [Concomitant]
     Dosage: CENTRUM OR ONE A DAY FOR WOMEN MULTIVITAMIN
  3. ONE-A-DAY [Concomitant]

REACTIONS (1)
  - DRUG INEFFECTIVE [None]
